FAERS Safety Report 24318500 (Version 1)
Quarter: 2024Q3

REPORT INFORMATION
  Report Type: Spontaneous
  Country: US (occurrence: US)
  Receive Date: 20240913
  Receipt Date: 20240913
  Transmission Date: 20241017
  Serious: Yes (Other)
  Sender: BRISTOL MYERS SQUIBB
  Company Number: US-BRISTOL-MYERS SQUIBB COMPANY-2024-145444

PATIENT
  Age: 81 Year
  Sex: Male
  Weight: 85.1 kg

DRUGS (14)
  1. POMALYST [Suspect]
     Active Substance: POMALIDOMIDE
     Indication: Plasma cell myeloma
     Route: 048
     Dates: start: 20240815, end: 20240827
  2. ACYCLOVIR [Concomitant]
     Active Substance: ACYCLOVIR
  3. METOPROLOL TARTRATE [Concomitant]
     Active Substance: METOPROLOL TARTRATE
  4. FUROSEMIDE [Concomitant]
     Active Substance: FUROSEMIDE
  5. PANTOPRAZOLE [Concomitant]
     Active Substance: PANTOPRAZOLE
     Dosage: AS NEEDED
  6. ROSUVASTATIN [Concomitant]
     Active Substance: ROSUVASTATIN\ROSUVASTATIN CALCIUM
  7. EZETIMIBE [Concomitant]
     Active Substance: EZETIMIBE
  8. XARELTO [Concomitant]
     Active Substance: RIVAROXABAN
  9. LISINOPRIL [Concomitant]
     Active Substance: LISINOPRIL
  10. AMLODIPINE [Concomitant]
     Active Substance: AMLODIPINE BESYLATE
  11. ASPIRIN [Concomitant]
     Active Substance: ASPIRIN
  12. VITAMIN D NOS [Concomitant]
     Active Substance: CHOLECALCIFEROL\ERGOCALCIFEROL
     Dosage: DOSE- 1000 UNITS
  13. VITAMINS [Concomitant]
     Active Substance: VITAMINS
  14. BACTRIM [Concomitant]
     Active Substance: SULFAMETHOXAZOLE\TRIMETHOPRIM
     Dosage: DOUBLE STRENGTH ON MONDAYS, WEDNESDAY AND FRIDAYS

REACTIONS (1)
  - Neutropenia [Unknown]
